FAERS Safety Report 6076676-2 (Version None)
Quarter: 2009Q1

REPORT INFORMATION
  Report Type: 
  Country: None (occurrence: None)
  Receive Date: 20090213
  Receipt Date: 20090203
  Transmission Date: 20090719
  Serious: Yes (Hospitalization, Other)
  Sender: FDA-Public Use
  Company Number: PHHY2009JP02770

PATIENT
  Sex: Male

DRUGS (5)
  1. FAMVIR [Suspect]
     Indication: HERPES ZOSTER
     Dosage: 250 MG, BID
     Route: 048
     Dates: start: 20090109, end: 20090113
  2. OLOPATADINE HYDROCHLORIDE [Concomitant]
     Dosage: UNK
     Dates: start: 20090109, end: 20090113
  3. NIFEDIPINE [Concomitant]
  4. ENALAPRIL MALEATE [Concomitant]
  5. ASPIRIN DIALUMINATE [Concomitant]

REACTIONS (7)
  - ALANINE AMINOTRANSFERASE INCREASED [None]
  - ASPARTATE AMINOTRANSFERASE INCREASED [None]
  - DYSSTASIA [None]
  - ENCEPHALOPATHY [None]
  - MUSCULAR WEAKNESS [None]
  - MYALGIA [None]
  - RHABDOMYOLYSIS [None]
